FAERS Safety Report 13873113 (Version 2)
Quarter: 2017Q4

REPORT INFORMATION
  Report Type: Spontaneous
  Country: US (occurrence: US)
  Receive Date: 20170816
  Receipt Date: 20171019
  Transmission Date: 20180320
  Serious: No
  Sender: FDA-Public Use
  Company Number: US-BRISTOL-MYERS SQUIBB COMPANY-BMS-2017-071042

PATIENT
  Sex: Female

DRUGS (4)
  1. METOPROLOL. [Suspect]
     Active Substance: METOPROLOL
     Indication: PRODUCT USED FOR UNKNOWN INDICATION
     Route: 065
  2. ELIQUIS [Suspect]
     Active Substance: APIXABAN
     Indication: PRODUCT USED FOR UNKNOWN INDICATION
     Dosage: UNK
     Route: 065
  3. XELJANZ XR [Suspect]
     Active Substance: TOFACITINIB CITRATE
     Indication: PRODUCT USED FOR UNKNOWN INDICATION
     Dosage: UNK
     Route: 065
  4. LEVOFLOXACIN. [Suspect]
     Active Substance: LEVOFLOXACIN
     Indication: PRODUCT USED FOR UNKNOWN INDICATION
     Dosage: UNK
     Route: 065

REACTIONS (17)
  - Synovitis [Unknown]
  - Crepitations [Unknown]
  - Arthralgia [Unknown]
  - Oedema peripheral [Unknown]
  - Bursitis [Unknown]
  - Foot deformity [Unknown]
  - Deformity [Unknown]
  - Ankle deformity [Unknown]
  - Liver function test increased [Unknown]
  - Tenderness [Unknown]
  - Hypokinesia [Unknown]
  - Atrophy [Unknown]
  - Swelling [Unknown]
  - Spinal disorder [Unknown]
  - Hand deformity [Unknown]
  - Nodal osteoarthritis [Unknown]
  - Joint stiffness [Unknown]
